FAERS Safety Report 24381458 (Version 2)
Quarter: 2024Q4

REPORT INFORMATION
  Report Type: Spontaneous
  Country: RU (occurrence: RU)
  Receive Date: 20241001
  Receipt Date: 20241018
  Transmission Date: 20250115
  Serious: Yes (Other)
  Sender: TEVA
  Company Number: RU-TEVA-VS-3247766

PATIENT
  Age: 43 Year
  Sex: Male

DRUGS (11)
  1. IRINOTECAN [Suspect]
     Active Substance: IRINOTECAN
     Indication: Colorectal cancer metastatic
     Dosage: ON DAY 1; BOLUS INJECTION; AS A PART OF FOLFIRI REGIMEN
     Route: 065
     Dates: start: 2018, end: 2018
  2. AFLIBERCEPT [Suspect]
     Active Substance: AFLIBERCEPT
     Indication: Colorectal cancer metastatic
     Dosage: ON DAY 1; BOLUS INJECTION
     Route: 065
     Dates: start: 2018, end: 2018
  3. NIVOLUMAB [Concomitant]
     Active Substance: NIVOLUMAB
     Indication: Colorectal cancer metastatic
     Route: 065
  4. NIVOLUMAB [Concomitant]
     Active Substance: NIVOLUMAB
     Indication: Colorectal cancer metastatic
     Route: 065
     Dates: start: 201812, end: 202109
  5. FLUOROURACIL [Suspect]
     Active Substance: FLUOROURACIL
     Indication: Colorectal cancer metastatic
     Dosage: ON DAY 1; BOLUS INJECTION; AS A PART OF FOLFIRI REGIMEN
     Route: 065
     Dates: start: 2018, end: 2018
  6. FLUOROURACIL [Suspect]
     Active Substance: FLUOROURACIL
     Indication: Colorectal cancer metastatic
     Dosage: 46 HOURS CONTINUOUS INFUSION
     Route: 065
     Dates: start: 2018, end: 2018
  7. LEUCOVORIN [Suspect]
     Active Substance: LEUCOVORIN\LEUCOVORIN CALCIUM
     Indication: Colorectal cancer metastatic
     Dosage: ON DAY 1; BOLUS INJECTION; AS A PART OF FOLFIRI REGIMEN
     Route: 065
     Dates: start: 2018, end: 2018
  8. BEVACIZUMAB [Concomitant]
     Active Substance: BEVACIZUMAB
     Indication: Colorectal cancer metastatic
     Dosage: ON DAY 1; BOLUS INJECTION
     Route: 065
  9. OXALIPLATIN [Suspect]
     Active Substance: OXALIPLATIN
     Indication: Colorectal cancer metastatic
     Dosage: ON DAY 1; BOLUS INJECTION; AS A PART OF FOLFOX REGIMEN
     Route: 065
  10. FLUOROURACIL [Concomitant]
     Active Substance: FLUOROURACIL
     Indication: Colorectal cancer metastatic
     Dosage: AS A PART OF FOLFOX REGIMEN
     Route: 065
  11. LEUCOVORIN [Concomitant]
     Active Substance: LEUCOVORIN\LEUCOVORIN CALCIUM
     Indication: Colorectal cancer metastatic
     Dosage: AS A PART OF FOLFOX REGIMEN
     Route: 065

REACTIONS (4)
  - Hypertension [Unknown]
  - Thrombocytopenia [Unknown]
  - Hypersensitivity [Unknown]
  - Nausea [Unknown]

NARRATIVE: CASE EVENT DATE: 20180101
